FAERS Safety Report 8132761-2 (Version None)
Quarter: 2012Q1

REPORT INFORMATION
  Report Type: 
  Country: None (occurrence: None)
  Receive Date: 20120213
  Receipt Date: 20120201
  Transmission Date: 20120608
  Serious: Yes (Hospitalization, Other)
  Sender: FDA-Public Use
  Company Number: IE-JNJFOC-20100707512

PATIENT
  Sex: Male
  Weight: 101.8 kg

DRUGS (2)
  1. REMICADE [Suspect]
     Indication: COLITIS ULCERATIVE
     Route: 042
     Dates: start: 20100701, end: 20100701
  2. ASACOLON [Concomitant]
     Indication: COLITIS ULCERATIVE
     Route: 048
     Dates: start: 20100630

REACTIONS (7)
  - LEFT VENTRICULAR DYSFUNCTION [None]
  - PLEURAL EFFUSION [None]
  - RASH MACULO-PAPULAR [None]
  - RASH PUSTULAR [None]
  - TACHYCARDIA [None]
  - PYREXIA [None]
  - SEPSIS [None]
